FAERS Safety Report 10570593 (Version 1)
Quarter: 2014Q4

REPORT INFORMATION
  Report Type: Spontaneous
  Country: IT (occurrence: IT)
  Receive Date: 20141107
  Receipt Date: 20141107
  Transmission Date: 20150529
  Serious: Yes (Hospitalization)
  Sender: FDA-Public Use
  Company Number: IT-BAYER-2014-162889

PATIENT
  Age: 64 Year
  Sex: Female

DRUGS (9)
  1. DIUREMID [Concomitant]
     Dosage: 10 MG, DAILY DOSE
     Route: 048
     Dates: start: 20140101, end: 20141023
  2. CARDIOASPIRIN [Suspect]
     Active Substance: ASPIRIN
     Indication: CARDIAC VALVE REPLACEMENT COMPLICATION
     Dosage: 100 MG, DAILY DOSE
     Route: 048
     Dates: start: 20140101, end: 20141023
  3. CARVEDILOL. [Concomitant]
     Active Substance: CARVEDILOL
     Dosage: 50 MG, DAILY DOSE
     Route: 048
  4. LOSAPREX [Concomitant]
     Active Substance: LOSARTAN POTASSIUM
     Dosage: 100 MG, DAILY DOSE
     Route: 048
  5. PANTOPRAZOLE SODIUM [Concomitant]
     Active Substance: PANTOPRAZOLE SODIUM
     Dosage: 20 MG, DAILY DOSE
  6. LANOXIN [Suspect]
     Active Substance: DIGOXIN
     Indication: CARDIAC FAILURE
     Dosage: 0.125 MG, DAILY DOSE
     Route: 048
  7. LUVION [Concomitant]
     Active Substance: CANRENONE
     Dosage: 50 MG, DAILY DOSE
     Route: 048
  8. CLEXANE [Concomitant]
     Active Substance: ENOXAPARIN SODIUM
     Indication: CARDIAC VALVE REPLACEMENT COMPLICATION
     Dosage: 2 DF, DAILY DOSE
     Route: 058
     Dates: start: 20141007, end: 20141025
  9. ZYLORIC [Concomitant]
     Active Substance: ALLOPURINOL
     Dosage: 150 MG, DAILY DOSE
     Route: 048
     Dates: start: 20141001, end: 20141023

REACTIONS (4)
  - Nausea [Recovered/Resolved]
  - Labelled drug-drug interaction medication error [Recovered/Resolved]
  - Toxicity to various agents [Recovered/Resolved]
  - Vomiting [Recovered/Resolved]

NARRATIVE: CASE EVENT DATE: 20141019
